FAERS Safety Report 24547904 (Version 1)
Quarter: 2024Q4

REPORT INFORMATION
  Report Type: Spontaneous
  Country: US (occurrence: US)
  Receive Date: 20241025
  Receipt Date: 20241025
  Transmission Date: 20250114
  Serious: No
  Sender: Haleon PLC
  Company Number: US-HALEON-2204678

PATIENT

DRUGS (1)
  1. ABREVA [Suspect]
     Active Substance: DOCOSANOL
     Indication: Oral herpes
     Dosage: TIME INTERVAL: 0.33333333 DAYS: USED OVER 10 DAYS.

REACTIONS (3)
  - Inappropriate schedule of product administration [Unknown]
  - Drug effect less than expected [Unknown]
  - Product use issue [Unknown]
